FAERS Safety Report 13995968 (Version 1)
Quarter: 2017Q3

REPORT INFORMATION
  Report Type: Spontaneous
  Country: US (occurrence: US)
  Receive Date: 20170921
  Receipt Date: 20170921
  Transmission Date: 20171128
  Serious: No
  Sender: FDA-Public Use
  Company Number: US-AMARIN PHARMA, INC.-2017AMR000167

PATIENT
  Sex: Male

DRUGS (4)
  1. VASCEPA [Suspect]
     Active Substance: ICOSAPENT ETHYL
     Indication: BLOOD TRIGLYCERIDES
     Route: 048
     Dates: start: 20170501, end: 201705
  2. SYNTHROID [Concomitant]
     Active Substance: LEVOTHYROXINE SODIUM
     Indication: PRODUCT USED FOR UNKNOWN INDICATION
  3. VASCEPA [Suspect]
     Active Substance: ICOSAPENT ETHYL
     Route: 048
     Dates: start: 201705, end: 20170529
  4. NEXIUM [Concomitant]
     Active Substance: ESOMEPRAZOLE MAGNESIUM
     Indication: PRODUCT USED FOR UNKNOWN INDICATION

REACTIONS (5)
  - Blood triglycerides increased [Unknown]
  - Prescribed underdose [Unknown]
  - Abdominal distension [Unknown]
  - Discomfort [Unknown]
  - Off label use [Unknown]
